FAERS Safety Report 13702912 (Version 1)
Quarter: 2017Q2

REPORT INFORMATION
  Report Type: Spontaneous
  Country: GB (occurrence: GB)
  Receive Date: 20170629
  Receipt Date: 20170629
  Transmission Date: 20170830
  Serious: Yes (Other)
  Sender: FDA-Public Use
  Company Number: GB-GILEAD-2017-0261205

PATIENT
  Age: 57 Year
  Sex: Female
  Weight: 94.8 kg

DRUGS (1)
  1. HARVONI [Suspect]
     Active Substance: LEDIPASVIR\SOFOSBUVIR
     Indication: CHRONIC HEPATITIS C
     Dosage: 1 DF, UNK
     Route: 048
     Dates: start: 20160520, end: 20160719

REACTIONS (4)
  - Viral mutation identified [Unknown]
  - Drug ineffective [Unknown]
  - Hepatitis C [Unknown]
  - Treatment failure [Unknown]

NARRATIVE: CASE EVENT DATE: 20161025
